FAERS Safety Report 4735350-2 (Version None)
Quarter: 2005Q3

REPORT INFORMATION
  Report Type: 
  Country: None (occurrence: None)
  Receive Date: 20050805
  Receipt Date: 20050704
  Transmission Date: 20060218
  Serious: Yes (Hospitalization, Disabling)
  Sender: FDA-Public Use
  Company Number: GB-ROCHE-409827

PATIENT
  Age: 72 Year
  Sex: Male
  Weight: 58.8 kg

DRUGS (3)
  1. IBANDRONIC ACID [Suspect]
     Route: 042
     Dates: start: 20050613, end: 20050613
  2. ASPIRIN [Concomitant]
     Route: 048
     Dates: start: 19990924, end: 20050619
  3. CASODEX [Concomitant]
     Route: 048
     Dates: start: 20050224, end: 20050719

REACTIONS (6)
  - ANAEMIA [None]
  - ANOREXIA [None]
  - AXILLARY VEIN THROMBOSIS [None]
  - EPISTAXIS [None]
  - PLATELET COUNT DECREASED [None]
  - SOMNOLENCE [None]
